FAERS Safety Report 7563098-8 (Version None)
Quarter: 2011Q2

REPORT INFORMATION
  Report Type: 
  Country: None (occurrence: None)
  Receive Date: 20110615
  Receipt Date: 20110606
  Transmission Date: 20111010
  Serious: Yes (Death, Other)
  Sender: FDA-Public Use
  Company Number: UTC-007121

PATIENT
  Age: 65 Year
  Sex: Female
  Weight: 91.8 kg

DRUGS (3)
  1. COUMADIN [Concomitant]
  2. TYVASO [Suspect]
     Indication: PULMONARY ARTERIAL HYPERTENSION
     Dosage: 72 MCG (18 MCG, 4 IN 1 D), INHALATION
     Route: 055
     Dates: start: 20110510
  3. REVATIO [Concomitant]

REACTIONS (5)
  - MOUTH HAEMORRHAGE [None]
  - CARDIAC ARREST [None]
  - PULMONARY HAEMORRHAGE [None]
  - INCOHERENT [None]
  - URINARY INCONTINENCE [None]
